FAERS Safety Report 4351795-7 (Version None)
Quarter: 2004Q2

REPORT INFORMATION
  Report Type: 
  Country: None (occurrence: None)
  Receive Date: 20040429
  Receipt Date: 20040308
  Transmission Date: 20050107
  Serious: No
  Sender: FDA-Public Use
  Company Number: 2004-113761-NL

PATIENT
  Age: 30 Year
  Sex: Female
  Weight: 65.9 kg

DRUGS (2)
  1. NUVARING [Suspect]
     Indication: CONTRACEPTION
     Dates: start: 20031201, end: 20040229
  2. MACROBID [Concomitant]

REACTIONS (1)
  - NIGHT SWEATS [None]
